FAERS Safety Report 9167432 (Version 3)
Quarter: 2013Q2

REPORT INFORMATION
  Report Type: Spontaneous
  Country: US (occurrence: None)
  Receive Date: 20130305
  Receipt Date: 20130422
  Transmission Date: 20140414
  Serious: Yes (Other)
  Sender: FDA-Public Use
  Company Number: AUR-APL-2013-01806

PATIENT
  Age: 55 Year
  Sex: Male
  Weight: 136 kg

DRUGS (8)
  1. METFORMIN [Suspect]
     Indication: DIABETES MELLITUS
     Dosage: 1000 MG (500 MG, 2 IN 1 D), ORAL
     Route: 048
  2. LYRICA [Suspect]
     Indication: NEUROPATHY PERIPHERAL
     Route: 048
     Dates: start: 2008
  3. HUMALOG [Suspect]
     Indication: DIABETES MELLITUS
     Dosage: 105 IU (35 IU, 3 IN 1 D)
  4. LANTUS [Suspect]
     Indication: DIABETES MELLITUS
     Dosage: 240 IU (120 IU, 2 IN 1 D)
  5. CLONAZEPAM (CLONAZEPAM) [Concomitant]
  6. VENLAFAXINE (VENLAFAXINE) [Concomitant]
  7. LISINOPRIL (LISINOPRIL) [Concomitant]
  8. AMLODIPINE (AMLODIPINE) [Concomitant]

REACTIONS (6)
  - Hearing impaired [None]
  - Pain [None]
  - Abasia [None]
  - Drug ineffective [None]
  - Diabetes mellitus [None]
  - Arthropathy [None]
